FAERS Safety Report 25632614 (Version 2)
Quarter: 2025Q3

REPORT INFORMATION
  Report Type: Report from Study
  Country: IN (occurrence: IN)
  Receive Date: 20250801
  Receipt Date: 20250806
  Transmission Date: 20251021
  Serious: Yes (Hospitalization, Other)
  Sender: Vantive US Healthcare
  Company Number: IN-VANTIVE-2024VAN018673

PATIENT
  Age: 15 Year
  Sex: Male

DRUGS (2)
  1. DIANEAL PD-2 PERITONEAL DIALYSIS SOLUTION WITH DEXTROSE [Suspect]
     Active Substance: CALCIUM CHLORIDE\DEXTROSE\MAGNESIUM CHLORIDE\SODIUM CHLORIDE\SODIUM LACTATE
     Indication: Renal failure
     Route: 033
  2. UNSPECIFIED INGREDIENT [Suspect]
     Active Substance: UNSPECIFIED INGREDIENT
     Route: 065

REACTIONS (11)
  - Peritonitis [Recovered/Resolved]
  - Abdominal pain [Recovered/Resolved]
  - Fungal peritonitis [Recovered/Resolved]
  - Peritoneal cloudy effluent [Recovered/Resolved]
  - Abdominal pain [Recovered/Resolved]
  - Pyrexia [Recovered/Resolved]
  - Peritonitis [Recovering/Resolving]
  - Peritoneal cloudy effluent [Recovered/Resolved]
  - Abdominal pain [Recovering/Resolving]
  - Constipation [Not Recovered/Not Resolved]
  - Peritoneal dialysis complication [Unknown]

NARRATIVE: CASE EVENT DATE: 20240728
